FAERS Safety Report 9866791 (Version 2)
Quarter: 2014Q1

REPORT INFORMATION
  Report Type: Spontaneous
  Country: IT (occurrence: IT)
  Receive Date: 20140204
  Receipt Date: 20140211
  Transmission Date: 20141002
  Serious: Yes (Other)
  Sender: FDA-Public Use
  Company Number: IT-ACCORD-021616

PATIENT
  Age: 59 Year
  Sex: Male
  Weight: 77 kg

DRUGS (4)
  1. IRINOTECAN [Suspect]
     Indication: CHEMOTHERAPY
     Route: 042
     Dates: start: 20121223, end: 20130401
  2. LEVOFOLINIC ACID [Concomitant]
     Indication: CHEMOTHERAPY
     Dosage: FOLFIRI
     Route: 042
     Dates: start: 20121223, end: 20130401
  3. FLUOROURACIL [Suspect]
     Indication: CHEMOTHERAPY
     Route: 040
     Dates: start: 20121223
  4. ERBITUX [Suspect]
     Indication: COLON CANCER METASTATIC
     Dosage: MERCK KGAA (ATC L01XC06)
     Route: 042
     Dates: start: 20121223

REACTIONS (5)
  - Vomiting [Unknown]
  - Atrial fibrillation [Unknown]
  - Nausea [Unknown]
  - Asthenia [Unknown]
  - Rash [Unknown]
